FAERS Safety Report 5068081-2 (Version None)
Quarter: 2006Q3

REPORT INFORMATION
  Report Type: 
  Country: None (occurrence: None)
  Receive Date: 20060802
  Receipt Date: 20051221
  Transmission Date: 20061208
  Serious: Yes (Death, Hospitalization)
  Sender: FDA-Public Use
  Company Number: NL-SANOFI-SYNTHELABO-F01200502836

PATIENT
  Sex: Female

DRUGS (7)
  1. PANTOZOL [Concomitant]
     Dosage: UNK
  2. ERBITUX [Suspect]
     Dosage: 400 MG/M2 DAY 1 OF CYCLE 1, THEREAFTER 250 MG/M2 WEEKLY
     Route: 041
     Dates: start: 20051214, end: 20051214
  3. AVASTIN [Suspect]
     Route: 041
     Dates: start: 20051214, end: 20051214
  4. CAPECITABINE [Suspect]
     Dosage: DAYS 1-14 (1250 MG/M2 AFTER CYCLE 6)
     Route: 048
     Dates: start: 20051214, end: 20051219
  5. ZOFRAN [Concomitant]
  6. OXALIPLATIN [Suspect]
     Indication: COLORECTAL CANCER
     Dosage: 200 MG
     Route: 041
     Dates: start: 20051214, end: 20051214
  7. METOCLOPRAMIDE [Concomitant]
     Dosage: UNK

REACTIONS (10)
  - ANOREXIA [None]
  - DEATH [None]
  - DEHYDRATION [None]
  - DIARRHOEA [None]
  - GENERAL PHYSICAL HEALTH DETERIORATION [None]
  - MALAISE [None]
  - MUCOSAL INFLAMMATION [None]
  - NAUSEA [None]
  - VOMITING [None]
  - WEIGHT DECREASED [None]
